FAERS Safety Report 14496653 (Version 1)
Quarter: 2018Q1

REPORT INFORMATION
  Report Type: Spontaneous
  Country: US (occurrence: US)
  Receive Date: 20180206
  Receipt Date: 20180206
  Transmission Date: 20180509
  Serious: Yes (Disabling, Other)
  Sender: FDA-Public Use
  Company Number: None

PATIENT
  Age: 63 Year
  Sex: Female
  Weight: 41.73 kg

DRUGS (6)
  1. BACLOFEN. [Concomitant]
     Active Substance: BACLOFEN
  2. VITAMIN D [Concomitant]
     Active Substance: CHOLECALCIFEROL
  3. MELATONIN [Concomitant]
     Active Substance: MELATONIN
  4. ALPRAZOLAM. [Concomitant]
     Active Substance: ALPRAZOLAM
  5. TRAZODONE [Concomitant]
     Active Substance: TRAZODONE HYDROCHLORIDE
  6. SEROQUEL [Suspect]
     Active Substance: QUETIAPINE FUMARATE
     Indication: BIPOLAR I DISORDER
     Dosage: 1 AT BEDTIME BY MOUTH
     Route: 048
     Dates: start: 20160716, end: 20170704

REACTIONS (15)
  - Therapy cessation [None]
  - Constipation [None]
  - Tooth deposit [None]
  - Teeth brittle [None]
  - Tooth fracture [None]
  - Retching [None]
  - Dry mouth [None]
  - Tooth loss [None]
  - Dry throat [None]
  - Spinal osteoarthritis [None]
  - Myalgia [None]
  - Dental caries [None]
  - Dental plaque [None]
  - Blister [None]
  - Abdominal distension [None]

NARRATIVE: CASE EVENT DATE: 201706
